FAERS Safety Report 9948018 (Version 1)
Quarter: 2014Q1

REPORT INFORMATION
  Report Type: Spontaneous
  Country: US (occurrence: None)
  Receive Date: 20140122
  Receipt Date: 20140122
  Transmission Date: 20141002
  Serious: Yes (Other)
  Sender: FDA-Public Use
  Company Number: AP356-00203-SPO-US

PATIENT
  Age: 68 Year
  Sex: Female
  Weight: 78 kg

DRUGS (1)
  1. BELVIQ [Suspect]
     Indication: WEIGHT DECREASED
     Route: 048
     Dates: start: 20130917, end: 20130924

REACTIONS (4)
  - Fatigue [None]
  - Dizziness [None]
  - Dyspnoea [None]
  - Local swelling [None]
